FAERS Safety Report 18230558 (Version 1)
Quarter: 2020Q3

REPORT INFORMATION
  Report Type: Spontaneous
  Country: DE (occurrence: DE)
  Receive Date: 20200904
  Receipt Date: 20200904
  Transmission Date: 20201103
  Serious: Yes (Hospitalization)
  Sender: FDA-Public Use
  Company Number: DE-009507513-2008DEU012579

PATIENT
  Age: 83 Year
  Sex: Female
  Weight: 80 kg

DRUGS (5)
  1. METOPROLOL. [Concomitant]
     Active Substance: METOPROLOL
     Dosage: 190 MG, 0.5?0?0?0, RETARD TABLETS
     Route: 048
  2. AMLODIPINE [Concomitant]
     Active Substance: AMLODIPINE BESYLATE
     Dosage: 5 MG, 1?0?0?0, TABLETS
     Route: 048
  3. JANUMET [Suspect]
     Active Substance: METFORMIN HYDROCHLORIDE\SITAGLIPTIN PHOSPHATE
     Dosage: 850|50 MG, 1?0?1?0, TABLETS
     Route: 048
  4. LIPROLOG MIX 50 [Suspect]
     Active Substance: INSULIN LISPRO
     Dosage: 26?0?26?0, AMPOULES
     Route: 058
  5. ENALAPRIL COMP ABZ [Concomitant]
     Dosage: 10|25 MG, 1?0?0?0, TABLETS
     Route: 048

REACTIONS (5)
  - Dizziness [Unknown]
  - Hypoglycaemia [Unknown]
  - General physical health deterioration [Unknown]
  - Somnolence [Unknown]
  - Hyperglycaemia [Unknown]
